FAERS Safety Report 24457531 (Version 1)
Quarter: 2024Q4

REPORT INFORMATION
  Report Type: Report from Study
  Country: US (occurrence: US)
  Receive Date: 20241018
  Receipt Date: 20241018
  Transmission Date: 20250115
  Serious: No
  Sender: ROCHE
  Company Number: US-ROCHE-3441635

PATIENT
  Age: 36 Year
  Sex: Female

DRUGS (6)
  1. ACTIVASE [Suspect]
     Active Substance: ALTEPLASE
     Indication: Pulmonary embolism
     Route: 065
  2. ACTIVASE [Suspect]
     Active Substance: ALTEPLASE
     Indication: Cor pulmonale acute
  3. ACTIVASE [Suspect]
     Active Substance: ALTEPLASE
     Indication: Acute kidney injury
  4. ACTIVASE [Suspect]
     Active Substance: ALTEPLASE
     Indication: Renal tubular necrosis
  5. ACTIVASE [Suspect]
     Active Substance: ALTEPLASE
     Indication: Acute respiratory failure
  6. ACTIVASE [Suspect]
     Active Substance: ALTEPLASE
     Indication: Hypoxia

REACTIONS (2)
  - Off label use [Unknown]
  - No adverse event [Unknown]
